FAERS Safety Report 8507090-5 (Version None)
Quarter: 2012Q2

REPORT INFORMATION
  Report Type: 
  Country: None (occurrence: None)
  Receive Date: 20120629
  Receipt Date: 20110317
  Transmission Date: 20120825
  Serious: Yes (Disabling)
  Sender: FDA-Public Use
  Company Number: FR-ALCON-1185476

PATIENT
  Age: 44 Year
  Sex: Female

DRUGS (1)
  1. AZOPT [Suspect]
     Dosage: 1, GTT DROP(S), 2, 1, DAYS
     Route: 047
     Dates: start: 20100520, end: 20110315

REACTIONS (2)
  - DEAFNESS TRANSITORY [None]
  - DEAFNESS [None]
